FAERS Safety Report 16963365 (Version 5)
Quarter: 2024Q1

REPORT INFORMATION
  Report Type: Spontaneous
  Country: US (occurrence: US)
  Receive Date: 20191025
  Receipt Date: 20240329
  Transmission Date: 20240409
  Serious: No
  Sender: FDA-Public Use
  Company Number: US-GSKCCFUS-CASE-00448698

PATIENT
  Sex: Male

DRUGS (4)
  1. FLOVENT [Suspect]
     Active Substance: FLUTICASONE PROPIONATE
     Indication: Asthma
     Dosage: 2 PUFF(S), BID
     Route: 065
     Dates: start: 201805
  2. FLOVENT [Suspect]
     Active Substance: FLUTICASONE PROPIONATE
     Dosage: 1 PUFF(S) EVERY 3 HOURS
     Route: 065
  3. FLOVENT [Suspect]
     Active Substance: FLUTICASONE PROPIONATE
     Indication: Asthma
     Dosage: 220MCG
     Dates: start: 20231212
  4. FLOVENT [Suspect]
     Active Substance: FLUTICASONE PROPIONATE

REACTIONS (11)
  - Sinusitis [Recovered/Resolved]
  - Bronchitis [Recovered/Resolved]
  - Productive cough [Unknown]
  - Lymphadenopathy [Recovered/Resolved]
  - Cough [Unknown]
  - Wrong technique in device usage process [Unknown]
  - Underdose [Unknown]
  - Wrong technique in product usage process [Unknown]
  - Incorrect dose administered [Unknown]
  - Product dose omission issue [Unknown]
  - Product complaint [Unknown]
